FAERS Safety Report 12156671 (Version 1)
Quarter: 2016Q1

REPORT INFORMATION
  Report Type: Spontaneous
  Country: FR (occurrence: FR)
  Receive Date: 20160307
  Receipt Date: 20160307
  Transmission Date: 20160526
  Serious: Yes (Other)
  Sender: FDA-Public Use
  Company Number: FR-LUNDBECK-DKLU2010915

PATIENT
  Sex: Female

DRUGS (3)
  1. ORTENAL [Suspect]
     Active Substance: AMPHETAMINE SULFATE\PHENOBARBITAL
     Indication: EPILEPSY
     Route: 048
  2. DEPAKINE [Suspect]
     Active Substance: VALPROATE SODIUM
     Indication: EPILEPSY
     Route: 048
  3. URBANYL [Suspect]
     Active Substance: CLOBAZAM
     Indication: EPILEPSY
     Route: 048

REACTIONS (3)
  - Drug ineffective [Unknown]
  - Fall [Unknown]
  - Epilepsy [Unknown]

NARRATIVE: CASE EVENT DATE: 1980
